FAERS Safety Report 17461187 (Version 1)
Quarter: 2020Q1

REPORT INFORMATION
  Report Type: Spontaneous
  Country: DE (occurrence: DE)
  Receive Date: 20200226
  Receipt Date: 20200226
  Transmission Date: 20200409
  Serious: Yes (Hospitalization)
  Sender: FDA-Public Use
  Company Number: DE-KYOWAKIRIN-2020BKK001185

PATIENT

DRUGS (2)
  1. CRYSVITA [Suspect]
     Active Substance: BUROSUMAB-TWZA
     Indication: HEREDITARY HYPOPHOSPHATAEMIC RICKETS
     Dosage: 40 MG, 1X/2 WEEKS
     Route: 058
     Dates: start: 201804
  2. DEKRISTOL [Suspect]
     Active Substance: CHOLECALCIFEROL
     Indication: HEREDITARY HYPOPHOSPHATAEMIC RICKETS
     Dosage: 400 IU
     Route: 048
     Dates: start: 201901

REACTIONS (2)
  - Contraindicated product administered [Unknown]
  - Basedow^s disease [Not Recovered/Not Resolved]

NARRATIVE: CASE EVENT DATE: 201901
